FAERS Safety Report 9103128 (Version 2)
Quarter: 2013Q1

REPORT INFORMATION
  Report Type: Report from Study
  Country: FI (occurrence: FI)
  Receive Date: 20130218
  Receipt Date: 20130315
  Transmission Date: 20140127
  Serious: Yes (Hospitalization)
  Sender: FDA-Public Use
  Company Number: FI-BIOGENIDEC-2013BI014257

PATIENT
  Age: 41 Year
  Sex: Male

DRUGS (3)
  1. TYSABRI [Suspect]
     Indication: RELAPSING-REMITTING MULTIPLE SCLEROSIS
     Route: 042
     Dates: start: 20100701
  2. BURANA [Concomitant]
     Dates: start: 20121101, end: 20121130
  3. PANADOL FORTE [Concomitant]
     Dates: start: 20121101, end: 20121130

REACTIONS (2)
  - Intervertebral disc protrusion [Recovered/Resolved]
  - Urinary tract disorder [Unknown]
